FAERS Safety Report 4725269-5 (Version None)
Quarter: 2005Q3

REPORT INFORMATION
  Report Type: 
  Country: None (occurrence: None)
  Receive Date: 20050721
  Receipt Date: 20050607
  Transmission Date: 20060218
  Serious: No
  Sender: FDA-Public Use
  Company Number: 2005SP001295

PATIENT
  Age: 44 Year
  Sex: Female
  Weight: 68.0396 kg

DRUGS (5)
  1. LUNESTA [Suspect]
     Dosage: 2 MG;HS;ORAL
     Route: 048
     Dates: start: 20050101
  2. YASMIN [Concomitant]
  3. ACIPHEX [Concomitant]
  4. ZELMEG [Concomitant]
  5. EFFEXOR [Concomitant]

REACTIONS (1)
  - DYSGEUSIA [None]
